FAERS Safety Report 7392755-1 (Version None)
Quarter: 2011Q2

REPORT INFORMATION
  Report Type: 
  Country: None (occurrence: None)
  Receive Date: 20110404
  Receipt Date: 20110324
  Transmission Date: 20111010
  Serious: Yes (Other)
  Sender: FDA-Public Use
  Company Number: US-BAXTER-2011BH007971

PATIENT
  Sex: Female

DRUGS (2)
  1. PHENERGAN HCL [Suspect]
     Indication: NAUSEA
     Route: 042
     Dates: start: 20091029, end: 20091029
  2. PHENERGAN HCL [Suspect]
     Indication: ABDOMINAL DISCOMFORT
     Route: 042
     Dates: start: 20091029, end: 20091029

REACTIONS (5)
  - LIVEDO RETICULARIS [None]
  - PAIN IN EXTREMITY [None]
  - OEDEMA PERIPHERAL [None]
  - DYSAESTHESIA [None]
  - DRY GANGRENE [None]
